FAERS Safety Report 9517693 (Version 1)
Quarter: 2013Q3

REPORT INFORMATION
  Report Type: Spontaneous
  Country: US (occurrence: US)
  Receive Date: 20130912
  Receipt Date: 20130912
  Transmission Date: 20140515
  Serious: No
  Sender: FDA-Public Use
  Company Number: US-BIOGENIDEC-2013BI083868

PATIENT
  Age: 49 Year
  Sex: Female

DRUGS (2)
  1. AVONEX [Suspect]
     Indication: MULTIPLE SCLEROSIS
     Route: 030
     Dates: start: 20011101
  2. AVONEX [Suspect]
     Indication: MULTIPLE SCLEROSIS
     Route: 030

REACTIONS (11)
  - Weight decreased [Recovered/Resolved]
  - White blood cell count increased [Unknown]
  - Diverticulitis [Recovered/Resolved]
  - General symptom [Recovered/Resolved]
  - Somnolence [Recovered/Resolved]
  - Thyroid disorder [Unknown]
  - Loss of consciousness [Unknown]
  - Multiple sclerosis relapse [Unknown]
  - Influenza like illness [Recovered/Resolved]
  - Diarrhoea [Recovered/Resolved]
  - Thyroid function test abnormal [Unknown]
